FAERS Safety Report 10227005 (Version 4)
Quarter: 2016Q4

REPORT INFORMATION
  Report Type: Report from Study
  Country: CA (occurrence: CA)
  Receive Date: 20140610
  Receipt Date: 20161017
  Transmission Date: 20170206
  Serious: Yes (Hospitalization, Other)
  Sender: FDA-Public Use
  Company Number: CA-ROCHE-1414475

PATIENT
  Age: 56 Year
  Sex: Male

DRUGS (6)
  1. DIPHENHYDRAMINE HCL [Concomitant]
     Indication: PREMEDICATION
     Route: 048
     Dates: start: 20110317
  2. METHOTREXATE. [Concomitant]
     Active Substance: METHOTREXATE
     Route: 065
  3. RITUXAN [Suspect]
     Active Substance: RITUXIMAB
     Indication: RHEUMATOID ARTHRITIS
     Dosage: FREQUENCY: DAY 1 AND 15
     Route: 042
     Dates: start: 20110317, end: 20160516
  4. METHYLPREDNISOLONE. [Concomitant]
     Active Substance: METHYLPREDNISOLONE
     Indication: PREMEDICATION
     Route: 042
     Dates: start: 20110317
  5. ACETAMINOPHEN. [Concomitant]
     Active Substance: ACETAMINOPHEN
     Route: 048
     Dates: start: 20130828
  6. ACETAMINOPHEN. [Concomitant]
     Active Substance: ACETAMINOPHEN
     Indication: PREMEDICATION
     Dosage: ON 08/JUL/2015, HE RECEIVED PREVIOUS RITUXIMAB DOSE.
     Route: 048
     Dates: start: 20110317, end: 20130327

REACTIONS (10)
  - Accident [Unknown]
  - Intermittent claudication [Not Recovered/Not Resolved]
  - Wound secretion [Not Recovered/Not Resolved]
  - Postoperative wound infection [Unknown]
  - Medical device site reaction [Unknown]
  - Road traffic accident [Unknown]
  - Femur fracture [Unknown]
  - Rheumatoid arthritis [Not Recovered/Not Resolved]
  - Ankle fracture [Unknown]
  - Femur fracture [Unknown]

NARRATIVE: CASE EVENT DATE: 20131221
